FAERS Safety Report 6292106-X (Version None)
Quarter: 2009Q3

REPORT INFORMATION
  Report Type: 
  Country: None (occurrence: None)
  Receive Date: 20090731
  Receipt Date: 20090721
  Transmission Date: 20100115
  Serious: Yes (Hospitalization, Disabling)
  Sender: FDA-Public Use
  Company Number: DE-BAYER-200922278GPV

PATIENT
  Age: 44 Year
  Sex: Male
  Weight: 101 kg

DRUGS (1)
  1. BETAFERON [Suspect]
     Indication: MULTIPLE SCLEROSIS
     Route: 058
     Dates: start: 20040101

REACTIONS (8)
  - ASTHENIA [None]
  - BLINDNESS CORTICAL [None]
  - CEREBRAL INFARCTION [None]
  - CEREBRAL THROMBOSIS [None]
  - COORDINATION ABNORMAL [None]
  - DYSARTHRIA [None]
  - HEMIANOPIA [None]
  - HEMIPARESIS [None]
